FAERS Safety Report 5066181-4 (Version None)
Quarter: 2006Q3

REPORT INFORMATION
  Report Type: 
  Country: None (occurrence: None)
  Receive Date: 20060703
  Receipt Date: 20060426
  Transmission Date: 20061208
  Serious: Yes (Hospitalization, Other)
  Sender: FDA-Public Use
  Company Number: WAES 0604USA03958

PATIENT
  Age: 36 Year
  Sex: Female

DRUGS (1)
  1. HYZAAR [Suspect]
     Indication: DRUG USE FOR UNKNOWN INDICATION
     Dosage: 32 TABLET/PO
     Route: 048
     Dates: start: 20060401

REACTIONS (2)
  - HYPOTENSION [None]
  - INTENTIONAL OVERDOSE [None]
